FAERS Safety Report 5026120-9 (Version None)
Quarter: 2006Q2

REPORT INFORMATION
  Report Type: 
  Country: None (occurrence: None)
  Receive Date: 20060612
  Receipt Date: 20060612
  Transmission Date: 20061013
  Serious: Yes (Other)
  Sender: FDA-Public Use
  Company Number: None

PATIENT
  Age: 51 Year
  Sex: Female
  Weight: 79.3795 kg

DRUGS (2)
  1. LEVAQUIN [Suspect]
     Indication: PNEUMONIA
     Dosage: SEE IMAGE
     Route: 048
     Dates: start: 20060420, end: 20060430
  2. LEVAQUIN [Suspect]
     Indication: PNEUMONIA
     Dosage: SEE IMAGE
     Route: 048
     Dates: start: 20060524, end: 20060525

REACTIONS (17)
  - ARTHRALGIA [None]
  - ASTHENIA [None]
  - BODY TEMPERATURE INCREASED [None]
  - DRUG HYPERSENSITIVITY [None]
  - DRUG TOXICITY [None]
  - EYE IRRITATION [None]
  - FEELING HOT [None]
  - FLUSHING [None]
  - HALLUCINATION [None]
  - HEADACHE [None]
  - JOINT SWELLING [None]
  - PERIPHERAL COLDNESS [None]
  - RASH [None]
  - RETCHING [None]
  - SEPSIS [None]
  - TREMOR [None]
  - VOMITING [None]
